FAERS Safety Report 9492193 (Version 1)
Quarter: 2013Q3

REPORT INFORMATION
  Report Type: Spontaneous
  Country: US (occurrence: None)
  Receive Date: 20130827
  Receipt Date: 20130827
  Transmission Date: 20140515
  Serious: Yes (Hospitalization)
  Sender: FDA-Public Use
  Company Number: SP06943

PATIENT
  Age: 86 Year
  Sex: Female

DRUGS (6)
  1. XIFAXAN [Suspect]
     Indication: DIVERTICULUM INTESTINAL
     Route: 048
     Dates: start: 20130503, end: 20130515
  2. ISOPTIN (COATED TABLET) [Concomitant]
  3. IPERTEN (TABLETS) [Concomitant]
  4. CATAPRESAN (TRANSDERMAL PATCH) [Concomitant]
  5. CARDIRENE (POWDER FOR ORAL SOLUTION) [Concomitant]
  6. ALLOPURINOL [Concomitant]

REACTIONS (2)
  - Blood pressure increased [None]
  - Headache [None]
